FAERS Safety Report 4773219-8 (Version None)
Quarter: 2005Q3

REPORT INFORMATION
  Report Type: 
  Country: None (occurrence: None)
  Receive Date: 20050919
  Receipt Date: 20050427
  Transmission Date: 20060218
  Serious: Yes (Disabling, Other)
  Sender: FDA-Public Use
  Company Number: CA-MERCK-0505CAN00029

PATIENT
  Age: 45 Year
  Sex: Male
  Weight: 100 kg

DRUGS (45)
  1. GABAPENTIN [Concomitant]
     Indication: PAIN
     Route: 065
     Dates: start: 20030601
  2. GABAPENTIN [Concomitant]
     Route: 065
     Dates: start: 20030701
  3. DICLOFENAC SODIUM AND MISOPROSTOL [Concomitant]
     Indication: PAIN
     Route: 065
     Dates: start: 19980501
  4. DICLOFENAC SODIUM AND MISOPROSTOL [Concomitant]
     Route: 065
     Dates: start: 19980601
  5. DICLOFENAC SODIUM AND MISOPROSTOL [Concomitant]
     Route: 065
     Dates: start: 20020301
  6. DICLOFENAC SODIUM AND MISOPROSTOL [Concomitant]
     Route: 065
     Dates: start: 20030701
  7. MEPERIDINE HYDROCHLORIDE [Concomitant]
     Indication: PAIN
     Route: 065
     Dates: start: 19980401
  8. MEPERIDINE HYDROCHLORIDE [Concomitant]
     Route: 065
     Dates: start: 19990501
  9. MEPERIDINE HYDROCHLORIDE [Concomitant]
     Route: 065
     Dates: start: 20011201
  10. ETODOLAC [Concomitant]
     Route: 065
     Dates: start: 19990601
  11. NAPROXEN [Concomitant]
     Indication: PAIN
     Route: 065
     Dates: start: 19980901, end: 19990201
  12. CYCLOBENZAPRINE HYDROCHLORIDE [Concomitant]
     Indication: PAIN
     Route: 065
     Dates: start: 19981001, end: 19990501
  13. CYCLOBENZAPRINE HYDROCHLORIDE [Concomitant]
     Route: 065
     Dates: start: 20010601
  14. CYCLOBENZAPRINE HYDROCHLORIDE [Concomitant]
     Route: 065
     Dates: start: 20010901
  15. CYCLOBENZAPRINE HYDROCHLORIDE [Concomitant]
     Route: 065
     Dates: start: 20020801
  16. KETOROLAC TROMETHAMINE [Concomitant]
     Indication: PAIN
     Route: 065
     Dates: start: 20010501
  17. KETOROLAC TROMETHAMINE [Concomitant]
     Route: 065
     Dates: start: 20010701
  18. KETOROLAC TROMETHAMINE [Concomitant]
     Route: 065
     Dates: start: 20010901
  19. KETOROLAC TROMETHAMINE [Concomitant]
     Route: 065
     Dates: start: 20011101
  20. KETOROLAC TROMETHAMINE [Concomitant]
     Route: 065
     Dates: start: 20011201
  21. AMITRIPTYLINE HYDROCHLORIDE [Concomitant]
     Route: 065
  22. OMEPRAZOLE SODIUM [Concomitant]
     Indication: GASTROOESOPHAGEAL REFLUX DISEASE
     Route: 048
     Dates: start: 20021105
  23. OMEPRAZOLE SODIUM [Concomitant]
     Indication: ULCER
     Route: 048
     Dates: start: 20021105
  24. SILDENAFIL CITRATE [Concomitant]
     Indication: ERECTILE DYSFUNCTION
     Route: 048
     Dates: start: 20021105
  25. BUDESONIDE [Concomitant]
     Indication: GASTROOESOPHAGEAL REFLUX DISEASE
     Route: 065
  26. BUDESONIDE [Concomitant]
     Indication: ULCER
     Route: 065
  27. LORAZEPAM [Concomitant]
     Route: 060
  28. LORATADINE [Concomitant]
     Route: 065
  29. DOCUSATE SODIUM [Concomitant]
     Route: 048
     Dates: start: 20030528
  30. MOMETASONE FUROATE [Concomitant]
     Route: 065
  31. AMOXICILLIN AND CLAVULANATE POTASSIUM [Concomitant]
     Indication: INFECTION
     Route: 048
     Dates: start: 20030924
  32. [THERAPY UNSPECIFIED] [Concomitant]
     Route: 065
  33. AMITRIPTYLINE HYDROCHLORIDE [Concomitant]
     Route: 065
  34. VIOXX [Suspect]
     Indication: ARTHRITIS
     Route: 048
     Dates: start: 19990701, end: 20041014
  35. VIOXX [Suspect]
     Indication: BACK PAIN
     Route: 048
     Dates: start: 19990701, end: 20041014
  36. OXYCODONE HYDROCHLORIDE [Concomitant]
     Indication: PAIN
     Route: 048
     Dates: start: 20011201, end: 20021105
  37. OXYCODONE HYDROCHLORIDE [Concomitant]
     Route: 048
     Dates: start: 20021105, end: 20030423
  38. OXYCODONE HYDROCHLORIDE [Concomitant]
     Route: 048
     Dates: start: 20030423, end: 20030507
  39. OXYCODONE HYDROCHLORIDE [Concomitant]
     Route: 048
     Dates: start: 20030507
  40. [THERAPY UNSPECIFIED] [Concomitant]
     Route: 065
  41. CETIRIZINE HYDROCHLORIDE [Concomitant]
     Indication: HYPERSENSITIVITY
     Route: 048
  42. ASPIRIN [Concomitant]
     Route: 065
     Dates: start: 19980101
  43. ACETAMINOPHEN AND CODEINE PHOSPHATE [Concomitant]
     Indication: PAIN
     Route: 048
     Dates: start: 19980101
  44. GABAPENTIN [Concomitant]
     Route: 048
     Dates: start: 20030201, end: 20030401
  45. GABAPENTIN [Concomitant]
     Route: 048
     Dates: start: 20030401

REACTIONS (7)
  - ANXIETY [None]
  - CEREBROVASCULAR ACCIDENT [None]
  - DEPRESSION [None]
  - HYPERTENSION [None]
  - MYOCARDIAL INFARCTION [None]
  - MYOCARDIAL ISCHAEMIA [None]
  - TRANSIENT ISCHAEMIC ATTACK [None]
